FAERS Safety Report 25734994 (Version 1)
Quarter: 2025Q3

REPORT INFORMATION
  Report Type: Spontaneous
  Country: US (occurrence: None)
  Receive Date: 20250827
  Receipt Date: 20250827
  Transmission Date: 20251020
  Serious: Yes (Life-Threatening)
  Sender: FDA-CTU
  Company Number: None

PATIENT
  Age: 75 Year
  Sex: Female
  Weight: 43.8 kg

DRUGS (3)
  1. PEMBROLIZUMAB [Suspect]
     Active Substance: PEMBROLIZUMAB
     Indication: Triple negative breast cancer
     Dates: start: 20250506, end: 20250715
  2. ABRAXANE [Concomitant]
     Active Substance: PACLITAXEL
     Dates: start: 20250506, end: 20250715
  3. TRODELVY [Concomitant]
     Active Substance: SACITUZUMAB GOVITECAN-HZIY
     Dates: start: 20240219, end: 20250415

REACTIONS (2)
  - Treatment delayed [None]
  - Toxic epidermal necrolysis [None]

NARRATIVE: CASE EVENT DATE: 20250806
